FAERS Safety Report 15332164 (Version 5)
Quarter: 2020Q3

REPORT INFORMATION
  Report Type: Spontaneous
  Country: PT (occurrence: PT)
  Receive Date: 20180829
  Receipt Date: 20200708
  Transmission Date: 20201102
  Serious: Yes (Life-Threatening)
  Sender: FDA-Public Use
  Company Number: PHHY2018PT082887

PATIENT
  Age: 48 Year
  Sex: Female
  Weight: 77 kg

DRUGS (18)
  1. ORLISTAT. [Suspect]
     Active Substance: ORLISTAT
     Indication: WEIGHT DECREASED
     Dosage: 100 MG QD
     Route: 048
     Dates: start: 201708, end: 201804
  2. MINULET [Interacting]
     Active Substance: ETHINYL ESTRADIOL\GESTODENE
     Dosage: 1 DF, ETHINYLESTRADIOL: 0.03 MG; GESTODENE: 0.07 MG
     Route: 048
     Dates: start: 201711, end: 201804
  3. PHENOLPHTHALEIN [Interacting]
     Active Substance: PHENOLPHTHALEIN
     Indication: WEIGHT DECREASED
     Dosage: 160 MG QD
     Route: 048
     Dates: start: 201708, end: 201804
  4. FLECAINIDE [Concomitant]
     Active Substance: FLECAINIDE
     Indication: VENTRICULAR EXTRASYSTOLES
     Dosage: 100 MG, QD
     Route: 048
     Dates: start: 201605
  5. CASCARA [Suspect]
     Active Substance: RHAMNUS PURSHIANA BARK EXTRACT
     Indication: WEIGHT DECREASED
     Dosage: 100 MG
     Route: 065
     Dates: start: 201708, end: 201804
  6. CENTELLA ASIATICA [Interacting]
     Active Substance: CENTELLA ASIATICA WHOLE
     Indication: WEIGHT DECREASED
     Dosage: 200 MG, BID
     Route: 048
     Dates: start: 201708, end: 201804
  7. SENNA [Suspect]
     Active Substance: SENNA LEAF\SENNOSIDES\SENNOSIDES A AND B
     Indication: WEIGHT DECREASED
     Dosage: 20 MG
     Route: 065
  8. FUROSEMIDE. [Interacting]
     Active Substance: FUROSEMIDE
     Indication: WEIGHT DECREASED
     Dosage: 80 MG QD
     Route: 048
     Dates: start: 201708, end: 201804
  9. CHLORDIAZEPOXIDE. [Suspect]
     Active Substance: CHLORDIAZEPOXIDE
     Indication: WEIGHT DECREASED
     Dosage: 20 MG, QD
     Route: 048
     Dates: start: 201708, end: 201804
  10. CHROMIUM PICOLINATE [Suspect]
     Active Substance: CHROMIUM PICOLINATE
     Indication: WEIGHT DECREASED
     Dosage: COMPOUNDED PREPARATION
     Route: 065
  11. FLECAINIDE [Concomitant]
     Active Substance: FLECAINIDE
     Dosage: 100 MG
     Route: 048
     Dates: start: 20160120
  12. BUPROPION. [Interacting]
     Active Substance: BUPROPION
     Indication: WEIGHT DECREASED
     Dosage: 200 MG QD
     Route: 048
     Dates: start: 201708, end: 201804
  13. MINULET [Interacting]
     Active Substance: ETHINYL ESTRADIOL\GESTODENE
     Indication: CONTRACEPTION
     Dosage: 1 ?G/L, QD
     Route: 048
     Dates: start: 201711, end: 201804
  14. METFORMIN [Suspect]
     Active Substance: METFORMIN HYDROCHLORIDE
     Indication: WEIGHT DECREASED
     Dosage: 400 MG, QD
     Route: 048
     Dates: start: 201708, end: 201804
  15. TOPIRAMATE. [Interacting]
     Active Substance: TOPIRAMATE
     Indication: WEIGHT DECREASED
     Dosage: 20 MG QD
     Route: 048
     Dates: start: 201708, end: 201804
  16. ORLISTAT. [Suspect]
     Active Substance: ORLISTAT
     Dosage: 50 MG
     Route: 048
  17. CHLORDIAZEPOXIDE. [Suspect]
     Active Substance: CHLORDIAZEPOXIDE
     Dosage: 10 MG
     Route: 048
     Dates: start: 201708, end: 201804
  18. CHROMIUM PICOLINATE [Suspect]
     Active Substance: CHROMIUM PICOLINATE
     Dosage: 200 MCG
     Route: 048
     Dates: start: 201708, end: 201804

REACTIONS (12)
  - Thalamic infarction [Recovered/Resolved]
  - Headache [Recovering/Resolving]
  - Slow response to stimuli [Recovering/Resolving]
  - Cerebral venous thrombosis [Recovered/Resolved]
  - Product use in unapproved indication [Unknown]
  - Drug interaction [Unknown]
  - Intentional product misuse [Unknown]
  - Disorientation [Recovered/Resolved]
  - Speech disorder [Recovered/Resolved]
  - Fatigue [Recovering/Resolving]
  - Psychomotor retardation [Recovering/Resolving]
  - Bradyphrenia [Recovered/Resolved]

NARRATIVE: CASE EVENT DATE: 20180404
